FAERS Safety Report 25156685 (Version 6)
Quarter: 2025Q4

REPORT INFORMATION
  Report Type: Spontaneous
  Country: US (occurrence: US)
  Receive Date: 20250403
  Receipt Date: 20251001
  Transmission Date: 20260118
  Serious: Yes (Death, Hospitalization, Other)
  Sender: SANOFI AVENTIS
  Company Number: US-SA-2025SA094527

PATIENT
  Age: 71 Year
  Sex: Female

DRUGS (2)
  1. DUPIXENT [Suspect]
     Active Substance: DUPILUMAB
     Indication: Chronic obstructive pulmonary disease
     Dosage: 300 MG, QOW
     Route: 058
     Dates: start: 202502
  2. DOXYCYCLINE [Concomitant]
     Active Substance: DOXYCYCLINE
     Dosage: UNK

REACTIONS (11)
  - Hepatic encephalopathy [Fatal]
  - Hepatic cirrhosis [Fatal]
  - Dyspnoea [Recovering/Resolving]
  - Abdominal pain [Unknown]
  - Diarrhoea [Unknown]
  - Viral infection [Unknown]
  - Pneumonia [Unknown]
  - Bronchitis [Recovering/Resolving]
  - Asthenia [Unknown]
  - Loss of personal independence in daily activities [Unknown]
  - Product administered at inappropriate site [Unknown]

NARRATIVE: CASE EVENT DATE: 20250101
